FAERS Safety Report 7335238-7 (Version None)
Quarter: 2011Q1

REPORT INFORMATION
  Report Type: 
  Country: None (occurrence: None)
  Receive Date: 20110217
  Receipt Date: 20100623
  Transmission Date: 20110831
  Serious: Yes (Other)
  Sender: FDA-Public Use
  Company Number: 624044

PATIENT
  Sex: Female

DRUGS (1)
  1. PRECEDEX [Suspect]
     Indication: PRODUCT USED FOR UNKNOWN INDICATION
     Dosage: INFUSION

REACTIONS (1)
  - BRADYCARDIA [None]
